FAERS Safety Report 6583685-3 (Version None)
Quarter: 2010Q1

REPORT INFORMATION
  Report Type: 
  Country: None (occurrence: None)
  Receive Date: 20100213
  Receipt Date: 20100213
  Transmission Date: 20100710
  Serious: No
  Sender: FDA-Public Use
  Company Number: None

PATIENT
  Age: 37 Year
  Sex: Male

DRUGS (2)
  1. PERCOCET [Suspect]
     Dosage: 5MG/325MG ONCE ORAL (PO)
     Route: 048
     Dates: start: 20100207, end: 20100207
  2. LEVAQUIN [Suspect]
     Dosage: 500 MG ONCE ORAL (PO)
     Route: 048
     Dates: start: 20100207, end: 20100207

REACTIONS (4)
  - DYSPNOEA [None]
  - OXYGEN SATURATION DECREASED [None]
  - SOMNOLENCE [None]
  - URTICARIA [None]
